FAERS Safety Report 7622807-X (Version None)
Quarter: 2011Q3

REPORT INFORMATION
  Report Type: 
  Country: None (occurrence: None)
  Receive Date: 20110720
  Receipt Date: 20110408
  Transmission Date: 20111222
  Serious: No
  Sender: FDA-Public Use
  Company Number: US-MYLANLABS-2011S1007690

PATIENT
  Sex: Male

DRUGS (2)
  1. TRIAMTERENE AND HYDROCHLOROTHIAZIDE [Suspect]
  2. TRIAMTERENE AND HYDROCHLOROTHIAZIDE [Suspect]

REACTIONS (1)
  - MALAISE [None]
